FAERS Safety Report 21122302 (Version 4)
Quarter: 2022Q4

REPORT INFORMATION
  Report Type: Report from Study
  Country: TR (occurrence: TR)
  Receive Date: 20220723
  Receipt Date: 20221006
  Transmission Date: 20230113
  Serious: Yes (Hospitalization, Other)
  Sender: FDA-Public Use
  Company Number: TR-ABBVIE-22K-161-4456369-00

PATIENT
  Age: 64 Year
  Sex: Female
  Weight: 70 kg

DRUGS (9)
  1. CARBIDOPA\LEVODOPA [Suspect]
     Active Substance: CARBIDOPA\LEVODOPA
     Indication: Parkinson^s disease
     Dosage: MORNING DOSE (ML) 7.00, CONTINUOUS DOSE (ML) 2.30, EXTRA DOSE (ML) 1.50
     Route: 050
     Dates: start: 20220614, end: 20220731
  2. CARBIDOPA\LEVODOPA [Suspect]
     Active Substance: CARBIDOPA\LEVODOPA
     Dosage: MORNING DOSE (ML): 7.00 CONTINIOUS DOSE (ML): 2.30 EXTRA DOSE (ML): 1.50
     Route: 050
     Dates: start: 20220804
  3. CARBIDOPA\LEVODOPA [Suspect]
     Active Substance: CARBIDOPA\LEVODOPA
     Route: 050
  4. DOPADEX SR [Concomitant]
     Indication: Parkinson^s disease
     Route: 048
  5. PEXA XR [Concomitant]
     Indication: Parkinson^s disease
     Route: 048
  6. COVID-19 VACCINE [Concomitant]
     Indication: COVID-19 immunisation
     Dosage: SINOVAC?FIRST DOSE
     Route: 030
  7. COVID-19 VACCINE [Concomitant]
     Indication: COVID-19 immunisation
     Dosage: SINOVAC?SECOND DOSE
     Route: 030
  8. COVID-19 VACCINE [Concomitant]
     Indication: COVID-19 immunisation
     Dosage: SINOVAC?THIRD DOSE
     Route: 030
  9. COVID-19 VACCINE [Concomitant]
     Indication: COVID-19 immunisation
     Dosage: SINOVAC?FOURTH DOSE
     Route: 030

REACTIONS (9)
  - Bradycardia [Recovered/Resolved]
  - Tachypnoea [Recovered/Resolved]
  - Oxygen saturation decreased [Recovered/Resolved]
  - Nosocomial infection [Recovered/Resolved]
  - Hypophagia [Recovered/Resolved]
  - Dyskinesia [Recovered/Resolved]
  - Stoma site infection [Recovered/Resolved]
  - Pneumonia [Recovered/Resolved]
  - Device occlusion [Unknown]

NARRATIVE: CASE EVENT DATE: 20220621
